FAERS Safety Report 6228056-4 (Version None)
Quarter: 2009Q2

REPORT INFORMATION
  Report Type: 
  Country: None (occurrence: None)
  Receive Date: 20090612
  Receipt Date: 20090601
  Transmission Date: 20091009
  Serious: Yes (Other)
  Sender: FDA-Public Use
  Company Number: US-MERCK-0808USA04803

PATIENT
  Sex: Male

DRUGS (2)
  1. SINGULAIR [Suspect]
     Route: 048
     Dates: start: 20080101
  2. COUMADIN [Concomitant]
     Route: 065

REACTIONS (4)
  - COUGH [None]
  - DYSPNOEA [None]
  - MALAISE [None]
  - SUICIDAL IDEATION [None]
